FAERS Safety Report 6531657-7 (Version None)
Quarter: 2010Q1

REPORT INFORMATION
  Report Type: 
  Country: None (occurrence: None)
  Receive Date: 20100107
  Receipt Date: 20100107
  Transmission Date: 20100710
  Serious: Yes (Hospitalization)
  Sender: FDA-Public Use
  Company Number: None

PATIENT
  Age: 48 Year
  Sex: Female

DRUGS (1)
  1. PRAZOSIN HYDROCHLORIDE [Suspect]
     Dates: start: 20090828

REACTIONS (1)
  - SYNCOPE [None]
